FAERS Safety Report 7058366-2 (Version None)
Quarter: 2010Q4

REPORT INFORMATION
  Report Type: 
  Country: None (occurrence: None)
  Receive Date: 20101022
  Receipt Date: 20101013
  Transmission Date: 20110411
  Serious: No
  Sender: FDA-Public Use
  Company Number: US-PFIZER INC-2010130820

PATIENT
  Sex: Female
  Weight: 58 kg

DRUGS (15)
  1. VFEND [Suspect]
     Indication: ASPERGILLOSIS
     Dosage: 200 MG, 2X/DAY
     Route: 048
     Dates: start: 20100901
  2. FENTANYL [Concomitant]
     Dosage: 62 UG, UNK
     Route: 062
  3. MORPHINE [Concomitant]
     Dosage: 2 MG, AS NEEDED
     Route: 042
  4. DOCUSATE [Concomitant]
     Dosage: 100 MG, 1X/DAY
  5. FERROUS GLUCONATE [Concomitant]
     Dosage: 325 MG, 3X/DAY
  6. ESCITALOPRAM [Concomitant]
     Dosage: 30 MG, 1X/DAY
  7. OMEPRAZOLE [Concomitant]
     Dosage: 20 MG, 2X/DAY
  8. LORAZEPAM [Concomitant]
     Dosage: .5MG TO 1MG AS NEEDED
     Route: 048
  9. ALDACTAZIDE [Concomitant]
     Dosage: 50 MG, 1X/DAY (25MG/25MG)
  10. AMIODARONE [Concomitant]
     Dosage: 400 MG, 2X/DAY (EVERY 12 HOURS)
  11. RAMIPRIL [Concomitant]
     Dosage: 2.5 MG, 1X/DAY
  12. CARVEDILOL [Concomitant]
     Dosage: 3.125 MG, 2X/DAY (EVERY 12 HOURS)
  13. GABAPENTIN [Concomitant]
     Dosage: 300 MG, 3X/DAY (EVERY 8 HOURS)
  14. FUROSEMIDE [Concomitant]
     Dosage: 40 MG, 1X/DAY
  15. OXYCODONE [Concomitant]
     Dosage: 15 MG, 8X/DAY

REACTIONS (2)
  - MUSCLE TWITCHING [None]
  - TREMOR [None]
